FAERS Safety Report 15937153 (Version 1)
Quarter: 2019Q1

REPORT INFORMATION
  Report Type: Spontaneous
  Country: JP (occurrence: JP)
  Receive Date: 20190208
  Receipt Date: 20190208
  Transmission Date: 20190417
  Serious: Yes (Other)
  Sender: FDA-Public Use
  Company Number: JP-ROCHE-2261745

PATIENT
  Age: 76 Year
  Sex: Female

DRUGS (1)
  1. TECENTRIQ [Suspect]
     Active Substance: ATEZOLIZUMAB
     Indication: NON-SMALL CELL LUNG CANCER
     Dosage: DOSAGE WAS UNCERTAIN.
     Route: 041

REACTIONS (2)
  - Pulmonary embolism [Recovering/Resolving]
  - Cerebral artery embolism [Not Recovered/Not Resolved]
